FAERS Safety Report 4830465-2 (Version None)
Quarter: 2005Q4

REPORT INFORMATION
  Report Type: 
  Country: None (occurrence: None)
  Receive Date: 20051117
  Receipt Date: 20050630
  Transmission Date: 20060501
  Serious: Yes (Other)
  Sender: FDA-Public Use
  Company Number: GB-ROCHE-409326

PATIENT
  Age: 31 Year
  Sex: Female
  Weight: 60.5 kg

DRUGS (7)
  1. FUZEON [Suspect]
     Indication: DRUG USE FOR UNKNOWN INDICATION
     Route: 058
  2. VALGANCICLOVIR [Suspect]
     Route: 065
     Dates: start: 20040915
  3. DIDANOSINE [Concomitant]
     Route: 048
     Dates: start: 20040915
  4. ATAZANAVIR [Concomitant]
     Route: 048
  5. RITONAVIR [Concomitant]
     Route: 048
  6. LAMIVUDINE [Concomitant]
     Route: 048
  7. CO TRIMOXAZOLE [Concomitant]
     Dosage: STARTED BEFORE 2004.
     Dates: start: 20040615

REACTIONS (2)
  - ABORTION SPONTANEOUS [None]
  - DRUG EXPOSURE DURING PREGNANCY [None]
